FAERS Safety Report 15713498 (Version 1)
Quarter: 2018Q4

REPORT INFORMATION
  Report Type: Spontaneous
  Country: US (occurrence: US)
  Receive Date: 20181212
  Receipt Date: 20181212
  Transmission Date: 20190205
  Serious: No
  Sender: FDA-Public Use
  Company Number: US-009507513-1812USA004012

PATIENT
  Age: 79 Year
  Sex: Female

DRUGS (6)
  1. ESOMEPRAZOLE. [Concomitant]
     Active Substance: ESOMEPRAZOLE MAGNESIUM
  2. CALCIUM (UNSPECIFIED) [Concomitant]
     Active Substance: CALCIUM
  3. MAGNESIUM (UNSPECIFIED) [Concomitant]
     Active Substance: MAGNESIUM
  4. VITAMIN D [Concomitant]
     Active Substance: CHOLECALCIFEROL
  5. LISINOPRIL. [Concomitant]
     Active Substance: LISINOPRIL
  6. DULERA [Suspect]
     Active Substance: FORMOTEROL FUMARATE DIHYDRATE\MOMETASONE FUROATE
     Indication: ASTHMA
     Dosage: 2 PUFFS, TWICE DAILY
     Route: 055
     Dates: start: 2008

REACTIONS (6)
  - Fungal infection [Recovered/Resolved]
  - Poor quality device used [Unknown]
  - Oesophagitis [Recovered/Resolved]
  - Hiatus hernia [Recovered/Resolved]
  - Product quality issue [Unknown]
  - No adverse event [Unknown]

NARRATIVE: CASE EVENT DATE: 201808
